FAERS Safety Report 7753489-4 (Version None)
Quarter: 2011Q3

REPORT INFORMATION
  Report Type: 
  Country: None (occurrence: None)
  Receive Date: 20110915
  Receipt Date: 20110905
  Transmission Date: 20111222
  Serious: Yes (Hospitalization)
  Sender: FDA-Public Use
  Company Number: GB-UCBSA-039734

PATIENT
  Sex: Female

DRUGS (7)
  1. FOLIC ACID [Concomitant]
  2. GABAPENTIN [Concomitant]
  3. FLUOXETINE [Concomitant]
  4. CIMZIA [Suspect]
     Indication: RHEUMATOID ARTHRITIS
     Dosage: LOADING DOSE; STRENGTH 200MG/ML:
     Route: 058
     Dates: start: 20110801, end: 20110101
  5. OMEPRAZOLE [Concomitant]
  6. METHOTREXATE [Concomitant]
     Route: 058
  7. CANDESARTAN CILEXETIL [Concomitant]

REACTIONS (4)
  - ARTHRITIS [None]
  - WEIGHT DECREASED [None]
  - ABDOMINAL PAIN [None]
  - C-REACTIVE PROTEIN INCREASED [None]
